FAERS Safety Report 8986521 (Version 2)
Quarter: 2013Q1

REPORT INFORMATION
  Report Type: Spontaneous
  Country: US (occurrence: US)
  Receive Date: 20121227
  Receipt Date: 20130131
  Transmission Date: 20140127
  Serious: Yes (Other)
  Sender: FDA-Public Use
  Company Number: US-BAYER-2012-134442

PATIENT
  Age: 29 Year
  Sex: Female

DRUGS (26)
  1. MIRENA [Suspect]
     Indication: CONTRACEPTION
     Dosage: 20 MCG/24HR, CONT
     Route: 015
     Dates: start: 20121218, end: 20121218
  2. MIRENA [Suspect]
     Indication: ENDOMETRIOSIS
     Dosage: UNK
     Dates: start: 20121218
  3. AZITHROMYCIN [Concomitant]
     Dosage: 250 MG,
     Route: 048
  4. PREDNISONE [Concomitant]
     Dosage: 10 MG, UNK
     Route: 048
  5. PREDNISONE [Concomitant]
     Dosage: 20 MG, UNK
     Route: 048
  6. PREDNISONE [Concomitant]
     Dosage: 30 MG, UNK
     Route: 048
  7. PREDNISONE [Concomitant]
     Dosage: 40 MG, UNK
     Route: 048
  8. ONDANSETRON [Concomitant]
     Indication: NAUSEA
     Dosage: 4 MG, UNK
  9. ONDANSETRON [Concomitant]
     Indication: VOMITING
  10. LEVOFLOXACIN [Concomitant]
     Dosage: 500 MG, QD
     Route: 048
  11. FLUCONAZOLE [Concomitant]
     Dosage: 150 MG, UNK
     Route: 048
  12. GUAIFENESIN [Concomitant]
     Indication: COUGH
     Dosage: 100-10MG/5ML
     Route: 048
  13. LORTAB [Concomitant]
     Indication: PAIN
     Dosage: 7.5-500 MG
  14. DIFLUCAN [Concomitant]
     Dosage: 150 MG, ONCE
     Route: 048
  15. FLUOXETINE HCL [Concomitant]
     Dosage: 20 MG, QAM
     Route: 048
  16. PHENTERMINE HCL [Concomitant]
     Dosage: 37.5 MG, QAM
     Route: 048
  17. VALTREX [Concomitant]
     Dosage: 1 G, UNK
     Route: 048
  18. ACYCLOVIR [ACICLOVIR] [Concomitant]
     Dosage: 400 MG, BID
  19. FEXOFENADINE HCL [Concomitant]
     Dosage: 180 MG, QD PRN
     Route: 048
  20. VITAMIN C [Concomitant]
     Dosage: 500 MG, QD
     Route: 048
  21. L-LYSINE [Concomitant]
     Dosage: 500 MG, QD PRN
     Route: 048
  22. VALACYCLOVIR HCL [Concomitant]
     Dosage: 1 G, BID
  23. PROVENTIL HFA [Concomitant]
     Dosage: 1-2 PUFFS Q 4 HRS PRN
     Route: 045
  24. EXCEDRIN MIGRAINE [Concomitant]
     Dosage: 2 BID PRN
     Route: 048
  25. MAXALT [Concomitant]
     Indication: HEADACHE
     Dosage: 10 MG, AT HS PRN
     Route: 048
  26. DULERA [Concomitant]
     Dosage: 100-5 MCG 2 PUFFS BID PRN
     Route: 045

REACTIONS (3)
  - Post procedural haemorrhage [Recovered/Resolved]
  - Abdominal pain lower [Recovered/Resolved]
  - Device deployment issue [Recovered/Resolved]
